FAERS Safety Report 17458282 (Version 2)
Quarter: 2020Q1

REPORT INFORMATION
  Report Type: Report from Study
  Country: CO (occurrence: CO)
  Receive Date: 20200225
  Receipt Date: 20200306
  Transmission Date: 20200409
  Serious: Yes (Hospitalization, Other)
  Sender: FDA-Public Use
  Company Number: PHHY2019CO018846

PATIENT
  Age: 49 Year
  Sex: Female
  Weight: 43 kg

DRUGS (4)
  1. ESOMEPRAZOLE MAGNESIUM. [Suspect]
     Active Substance: ESOMEPRAZOLE MAGNESIUM
     Indication: PRODUCT USED FOR UNKNOWN INDICATION
     Route: 065
  2. AFINITOR [Suspect]
     Active Substance: EVEROLIMUS
     Indication: BREAST CANCER
     Dosage: 10 MG, QD
     Route: 048
     Dates: start: 20181114
  3. KISQALI [Suspect]
     Active Substance: RIBOCICLIB
     Indication: BREAST CANCER
     Dosage: 600 MG, QD
     Route: 048
  4. ALSUCRAL [Concomitant]
     Indication: PRODUCT USED FOR UNKNOWN INDICATION
     Dosage: UNK
     Route: 065

REACTIONS (24)
  - Breast discharge [Recovered/Resolved]
  - Skin haemorrhage [Unknown]
  - Breast discharge [Unknown]
  - Breast inflammation [Unknown]
  - Breast haemorrhage [Unknown]
  - Erythema [Unknown]
  - Breast pain [Recovered/Resolved]
  - Breast disorder [Unknown]
  - Skin exfoliation [Unknown]
  - Rash [Unknown]
  - Dehydration [Unknown]
  - Deformity thorax [Unknown]
  - Back pain [Not Recovered/Not Resolved]
  - Breast cancer [Unknown]
  - Malignant neoplasm progression [Unknown]
  - Weight decreased [Unknown]
  - Skin irritation [Unknown]
  - Metastases to bone [Unknown]
  - Dry skin [Unknown]
  - Breast pain [Unknown]
  - Bacterial infection [Unknown]
  - Diarrhoea [Unknown]
  - Pruritus [Unknown]
  - General physical health deterioration [Unknown]

NARRATIVE: CASE EVENT DATE: 201911
